FAERS Safety Report 17596956 (Version 6)
Quarter: 2020Q4

REPORT INFORMATION
  Report Type: Spontaneous
  Country: US (occurrence: US)
  Receive Date: 20200330
  Receipt Date: 20201014
  Transmission Date: 20210113
  Serious: Yes (Other)
  Sender: FDA-Public Use
  Company Number: US-GLAXOSMITHKLINE-US2020AMR054047

PATIENT
  Sex: Female

DRUGS (6)
  1. ZEJULA [Suspect]
     Active Substance: NIRAPARIB
     Indication: OVARIAN CANCER
     Dosage: 200 MG, QD
     Route: 065
     Dates: start: 20200212
  2. ZEJULA [Suspect]
     Active Substance: NIRAPARIB
     Dosage: 100 MG, QD
     Route: 065
     Dates: start: 20200406
  3. ZEJULA [Suspect]
     Active Substance: NIRAPARIB
     Dosage: 100 MG, QD
     Route: 048
  4. ZEJULA [Suspect]
     Active Substance: NIRAPARIB
     Dosage: 100 MG, QD
     Route: 065
  5. ZEJULA [Suspect]
     Active Substance: NIRAPARIB
     Dosage: 100 MG, (100MG EVERY OTHER NIGHT)
     Route: 065
  6. ZEJULA [Suspect]
     Active Substance: NIRAPARIB
     Dosage: 200 MG, (ALTERNATING WITH 200MG EVERY OTHER)
     Route: 065

REACTIONS (5)
  - Ill-defined disorder [Unknown]
  - Recurrent cancer [Unknown]
  - Platelet count decreased [Recovering/Resolving]
  - Lymph nodes scan abnormal [Unknown]
  - Laboratory test abnormal [Unknown]
